FAERS Safety Report 5835527-9 (Version None)
Quarter: 2008Q3

REPORT INFORMATION
  Report Type: 
  Country: None (occurrence: None)
  Receive Date: 20080806
  Receipt Date: 20080805
  Transmission Date: 20090109
  Serious: Yes (Other)
  Sender: FDA-Public Use
  Company Number: A0741230A

PATIENT
  Age: 49 Year
  Sex: Female

DRUGS (1)
  1. BUPROPION HYDROCHLORIDE [Suspect]
     Indication: DEPRESSION
     Dosage: 150MG PER DAY
     Route: 048
     Dates: start: 20080501, end: 20080601

REACTIONS (5)
  - DISSOCIATION [None]
  - ENERGY INCREASED [None]
  - MALAISE [None]
  - MANIA [None]
  - MOOD ALTERED [None]
